FAERS Safety Report 10610646 (Version 3)
Quarter: 2015Q4

REPORT INFORMATION
  Report Type: Spontaneous
  Country: US (occurrence: US)
  Receive Date: 20141126
  Receipt Date: 20151125
  Transmission Date: 20160304
  Serious: Yes (Hospitalization, Other)
  Sender: FDA-Public Use
  Company Number: US-MALLINCKRODT-T201403689

PATIENT
  Age: 64 Year
  Sex: Female

DRUGS (4)
  1. GABLOFEN [Suspect]
     Active Substance: BACLOFEN
     Dosage: 407 MCG/DAY
     Route: 037
  2. GABLOFEN [Suspect]
     Active Substance: BACLOFEN
     Indication: MUSCLE SPASTICITY
     Dosage: 376 MCG/DAY (20.9 MCG/HR FOR 12 HRS AND 124.9 NIGHTTIME)
     Route: 037
  3. GABLOFEN [Suspect]
     Active Substance: BACLOFEN
     Dosage: 260 MCG/DAY
  4. GABLOFEN [Suspect]
     Active Substance: BACLOFEN
     Dosage: 387UG/DAY
     Route: 037

REACTIONS (3)
  - Overdose [Recovering/Resolving]
  - Product physical issue [Unknown]
  - Device failure [Unknown]

NARRATIVE: CASE EVENT DATE: 201408
